FAERS Safety Report 4320859-6 (Version None)
Quarter: 2004Q1

REPORT INFORMATION
  Report Type: 
  Country: None (occurrence: None)
  Receive Date: 20040318
  Receipt Date: 20040304
  Transmission Date: 20041129
  Serious: Yes (Hospitalization, Other)
  Sender: FDA-Public Use
  Company Number: 2004S1000652

PATIENT
  Age: 39 Year
  Sex: Female
  Weight: 77.1115 kg

DRUGS (7)
  1. CLOZAPINE [Suspect]
     Indication: SCHIZOAFFECTIVE DISORDER
     Dosage: 400 MG QD, ORAL
     Route: 048
     Dates: start: 20030301
  2. METOPROLOL SUCCINATE [Concomitant]
  3. NITRGLYCERIN TRANSDERMAL SYSTEM [Concomitant]
  4. EZETIMIBE [Concomitant]
  5. INSULIN [Concomitant]
  6. SERTRALINE HCL [Concomitant]
  7. TOPIRMATE [Concomitant]

REACTIONS (5)
  - ANAEMIA [None]
  - DIABETES MELLITUS [None]
  - MYOCARDIAL INFARCTION [None]
  - PLATELET COUNT INCREASED [None]
  - WHITE BLOOD CELL COUNT DECREASED [None]
